FAERS Safety Report 9250435 (Version 1)
Quarter: 2013Q1

REPORT INFORMATION
  Report Type: Spontaneous
  Country: US (occurrence: None)
  Receive Date: 20130305
  Receipt Date: 20130305
  Transmission Date: 20140127
  Serious: Yes (Hospitalization)
  Sender: FDA-Public Use
  Company Number: 163-21880-12050098

PATIENT
  Sex: Male
  Weight: 86.64 kg

DRUGS (8)
  1. REVLIMID [Suspect]
     Indication: PLASMA CELL MYELOMA
     Dosage: 25 MG, DAILY X 21 DAYS, PO
     Route: 048
     Dates: start: 20111111
  2. LEVOTHYROXINE (LEVOTHYROXINE) [Concomitant]
  3. CYCLOBENZAPRINE (CYCLOBENZAPRINE) [Concomitant]
  4. MORPHINE [Concomitant]
  5. MELOXICAM (MELOXICAM) [Concomitant]
  6. LORTAB (VICODIN) [Concomitant]
  7. NORVASC (AMLODIPINE BESILATE) [Concomitant]
  8. MULTIVIAMINS (MULTIVITAMINS) [Concomitant]

REACTIONS (2)
  - Thrombosis [None]
  - Burning sensation [None]
